FAERS Safety Report 25506779 (Version 1)
Quarter: 2025Q3

REPORT INFORMATION
  Report Type: Spontaneous
  Country: CN (occurrence: CN)
  Receive Date: 20250702
  Receipt Date: 20250702
  Transmission Date: 20251021
  Serious: Yes (Hospitalization)
  Sender: Hugel Aesthetics
  Company Number: CN-Hugel Aesthetics-2179825

PATIENT
  Age: 23 Year
  Sex: Female

DRUGS (2)
  1. LETYBO [Suspect]
     Active Substance: LETIBOTULINUMTOXINA-WLBG
     Dates: start: 20250621
  2. Drug Name: Product name not?reported [Concomitant]

REACTIONS (9)
  - Dizziness [Recovering/Resolving]
  - Dysphonia [Recovering/Resolving]
  - Botulism [Recovering/Resolving]
  - Vomiting [Recovering/Resolving]
  - Dysarthria [Recovering/Resolving]
  - Dysphagia [Recovering/Resolving]
  - Asthenia [Recovering/Resolving]
  - Pharyngeal erythema [Not Recovered/Not Resolved]
  - Oropharyngeal pain [Not Recovered/Not Resolved]

NARRATIVE: CASE EVENT DATE: 20250621
